FAERS Safety Report 13862564 (Version 1)
Quarter: 2017Q3

REPORT INFORMATION
  Report Type: Spontaneous
  Country: US (occurrence: US)
  Receive Date: 20170814
  Receipt Date: 20170814
  Transmission Date: 20171127
  Serious: Yes (Other)
  Sender: FDA-Public Use
  Company Number: US-ROCHE-1975077

PATIENT
  Sex: Female

DRUGS (2)
  1. CELLCEPT [Suspect]
     Active Substance: MYCOPHENOLATE MOFETIL\MYCOPHENOLATE MOFETIL HYDROCHLORIDE
     Indication: ENCEPHALITIS AUTOIMMUNE
     Dosage: 1 PILL 2 TIMES A DAY ;ONGOING: NO
     Route: 048
     Dates: start: 20170630, end: 20170717
  2. CELLCEPT [Suspect]
     Active Substance: MYCOPHENOLATE MOFETIL\MYCOPHENOLATE MOFETIL HYDROCHLORIDE
     Dosage: 2 PILLS 2 TIMES A DAY ;ONGOING: UNKNOWN
     Route: 048
     Dates: start: 20170718

REACTIONS (4)
  - Cerebral disorder [Unknown]
  - Intentional product use issue [Unknown]
  - Off label use [Unknown]
  - Rash [Unknown]
